FAERS Safety Report 18480661 (Version 1)
Quarter: 2020Q4

REPORT INFORMATION
  Report Type: Spontaneous
  Country: CN (occurrence: CN)
  Receive Date: 20201109
  Receipt Date: 20201109
  Transmission Date: 20210114
  Serious: Yes (Hospitalization)
  Sender: FDA-Public Use
  Company Number: CN-LUPIN PHARMACEUTICALS INC.-2020-07566

PATIENT
  Age: 75 Year
  Sex: Male

DRUGS (4)
  1. VANCOMYCIN [Suspect]
     Active Substance: VANCOMYCIN
     Indication: CELLULITIS STAPHYLOCOCCAL
  2. HALOMETASONE [Concomitant]
     Active Substance: HALOMETASONE
     Indication: PEMPHIGOID
     Dosage: UNK
     Route: 065
     Dates: start: 2019
  3. VANCOMYCIN [Suspect]
     Active Substance: VANCOMYCIN
     Indication: PNEUMONIA STAPHYLOCOCCAL
     Dosage: 500 MILLIGRAM, BID (EVERY 12 HOURS)
     Route: 065
     Dates: start: 2019, end: 2019
  4. PREDNISONE. [Concomitant]
     Active Substance: PREDNISONE
     Indication: PEMPHIGOID
     Dosage: 20 MILLIGRAM, QD
     Route: 048
     Dates: start: 2019

REACTIONS (2)
  - Pyrexia [Recovered/Resolved]
  - Eosinophil count increased [Unknown]

NARRATIVE: CASE EVENT DATE: 2019
